FAERS Safety Report 15142124 (Version 1)
Quarter: 2018Q3

REPORT INFORMATION
  Report Type: Spontaneous
  Country: US (occurrence: US)
  Receive Date: 20180713
  Receipt Date: 20180713
  Transmission Date: 20181010
  Serious: No
  Sender: FDA-Public Use
  Company Number: US-ASTELLAS-2017US029264

PATIENT
  Age: 64 Year
  Sex: Female

DRUGS (1)
  1. MYRBETRIQ [Suspect]
     Active Substance: MIRABEGRON
     Indication: PRODUCT USED FOR UNKNOWN INDICATION
     Route: 048
     Dates: start: 20170717, end: 20170717

REACTIONS (4)
  - Headache [Unknown]
  - Intentional product misuse [Unknown]
  - Pain in jaw [Unknown]
  - Bladder spasm [Unknown]

NARRATIVE: CASE EVENT DATE: 20170717
